FAERS Safety Report 7481793-6 (Version None)
Quarter: 2011Q2

REPORT INFORMATION
  Report Type: 
  Country: None (occurrence: None)
  Receive Date: 20110516
  Receipt Date: 20110505
  Transmission Date: 20111010
  Serious: Yes (Hospitalization)
  Sender: FDA-Public Use
  Company Number: KR-ASTRAZENECA-2011SE26862

PATIENT
  Age: 62 Year
  Sex: Female
  Weight: 58.3 kg

DRUGS (9)
  1. ALAXYL [Concomitant]
     Dates: start: 20100601
  2. LIDOCAINE [Suspect]
     Indication: SPINAL COLUMN STENOSIS
     Route: 030
     Dates: start: 20101203, end: 20101203
  3. INVESTIGATIONAL DRUG [Suspect]
     Indication: RHEUMATOID ARTHRITIS
     Dosage: TWO TIMES A DAY
     Route: 048
     Dates: start: 20090904, end: 20101212
  4. FOLIC ACID [Concomitant]
     Dates: start: 20050108, end: 20101213
  5. DEFLAZACORT [Suspect]
     Indication: RHEUMATOID ARTHRITIS
     Route: 048
     Dates: start: 20100601
  6. METHOTREXATE [Suspect]
     Indication: RHEUMATOID ARTHRITIS
     Dosage: ONCE A WEEK
     Route: 048
     Dates: start: 20050207, end: 20101213
  7. ACECLOFENAC [Concomitant]
     Dates: start: 20081210, end: 20101213
  8. RANITIDINE [Concomitant]
     Dates: start: 20090721
  9. HYDROCHLOROTHIAZIDE [Concomitant]
     Dates: start: 20090904

REACTIONS (2)
  - INTERVERTEBRAL DISCITIS [None]
  - INFECTIVE THROMBOSIS [None]
